FAERS Safety Report 15833651 (Version 2)
Quarter: 2019Q4

REPORT INFORMATION
  Report Type: Spontaneous
  Country: CA (occurrence: CA)
  Receive Date: 20190116
  Receipt Date: 20191204
  Transmission Date: 20200122
  Serious: Yes (Hospitalization, Other)
  Sender: FDA-Public Use
  Company Number: CA-PFIZER INC-2019018191

PATIENT
  Age: 28 Year
  Sex: Female

DRUGS (9)
  1. TYLENOL [Suspect]
     Active Substance: ACETAMINOPHEN
     Indication: PREMEDICATION
     Dosage: UNK
  2. HYDROCORTISONE. [Suspect]
     Active Substance: HYDROCORTISONE
     Indication: PREMEDICATION
     Dosage: UNK
  3. DEBENDOX [DOXYLAMINE SUCCINATE;PYRIDOXINE HYDROCHLORIDE] [Suspect]
     Active Substance: DOXYLAMINE SUCCINATE\PYRIDOXINE HYDROCHLORIDE
     Dosage: UNK
  4. REMICADE [Suspect]
     Active Substance: INFLIXIMAB
     Dosage: 800 MG, UNK [1 EVERY 8 WEEK(S)]
     Route: 042
  5. REMICADE [Suspect]
     Active Substance: INFLIXIMAB
     Indication: COLITIS ULCERATIVE
     Dosage: 800 MG, UNK [1 EVERY 8 WEEK(S)]
     Route: 042
  6. BENADRYL [Suspect]
     Active Substance: DIPHENHYDRAMINE HYDROCHLORIDE
     Indication: PREMEDICATION
     Dosage: UNK
  7. IMURAN [Suspect]
     Active Substance: AZATHIOPRINE
     Dosage: 150 MG, UNK
  8. AERIUS [EBASTINE] [Suspect]
     Active Substance: EBASTINE
     Indication: PREMEDICATION
     Dosage: UNK
  9. GRAVOL [Suspect]
     Active Substance: DIMENHYDRINATE
     Indication: PREMEDICATION
     Dosage: UNK

REACTIONS (6)
  - Fall [Recovered/Resolved]
  - Exposure during pregnancy [Recovered/Resolved]
  - Lower limb fracture [Recovered/Resolved]
  - Diarrhoea [Recovered/Resolved]
  - Gestational hypertension [Recovered/Resolved]
  - Urinary tract infection [Recovered/Resolved]
